FAERS Safety Report 4855132-0 (Version None)
Quarter: 2005Q4

REPORT INFORMATION
  Report Type: 
  Country: None (occurrence: None)
  Receive Date: 20051125
  Receipt Date: 20041221
  Transmission Date: 20060501
  Serious: Yes (Hospitalization)
  Sender: FDA-Public Use
  Company Number: US-JNJFOC-20041003573

PATIENT
  Age: 36 Year
  Sex: Male
  Weight: 84.8226 kg

DRUGS (5)
  1. LEVAQUIN [Suspect]
     Indication: EPIDIDYMITIS
     Dosage: 500 MG, 1 IN 3 DAY
     Dates: start: 20041001
  2. DILANTIN [Concomitant]
  3. ATIVAN [Concomitant]
  4. PAXIL [Concomitant]
  5. VICODIN [Concomitant]

REACTIONS (2)
  - CONVULSION [None]
  - DRUG ADMINISTRATION ERROR [None]
